FAERS Safety Report 7902441-4 (Version None)
Quarter: 2011Q4

REPORT INFORMATION
  Report Type: 
  Country: None (occurrence: None)
  Receive Date: 20111108
  Receipt Date: 20111103
  Transmission Date: 20120403
  Serious: Yes (Other)
  Sender: FDA-Public Use
  Company Number: US-ABBOTT-11P-163-0860969-00

PATIENT
  Sex: Female
  Weight: 86.26 kg

DRUGS (5)
  1. LUPRON DEPOT [Suspect]
     Indication: POLYCYSTIC OVARIES
  2. SEASONIQUE [Concomitant]
     Indication: POLYCYSTIC OVARIES
  3. GLUCOPHAGE [Concomitant]
     Indication: POLYCYSTIC OVARIES
  4. SEASONIQUE [Concomitant]
     Indication: ENDOMETRIOSIS
     Dosage: LOW DOSE
  5. LUPRON DEPOT [Suspect]
     Indication: ENDOMETRIOSIS
     Dates: start: 20110902

REACTIONS (9)
  - OVARIAN CYST [None]
  - ABDOMINAL PAIN [None]
  - VOMITING [None]
  - BONE PAIN [None]
  - DEPRESSION [None]
  - CRYING [None]
  - LOCALISED INTRAABDOMINAL FLUID COLLECTION [None]
  - PAIN [None]
  - NAUSEA [None]
